FAERS Safety Report 6920213-4 (Version None)
Quarter: 2010Q3

REPORT INFORMATION
  Report Type: 
  Country: None (occurrence: None)
  Receive Date: 20100809
  Receipt Date: 20100723
  Transmission Date: 20110219
  Serious: Yes (Death, Hospitalization)
  Sender: FDA-Public Use
  Company Number: AE 2010-188

PATIENT
  Age: 49 Year
  Sex: Female

DRUGS (1)
  1. FAZACLO ODT [Suspect]
     Indication: SCHIZOPHRENIA
     Dosage: 850 MG DAILY PO
     Route: 048
     Dates: start: 20070829

REACTIONS (1)
  - METASTATIC MALIGNANT MELANOMA [None]
